FAERS Safety Report 8426022-1 (Version None)
Quarter: 2012Q2

REPORT INFORMATION
  Report Type: 
  Country: None (occurrence: None)
  Receive Date: 20120604
  Receipt Date: 20120523
  Transmission Date: 20120825
  Serious: Yes (Other)
  Sender: FDA-Public Use
  Company Number: 2012SP026477

PATIENT
  Age: 61 Year
  Sex: Female
  Weight: 45 kg

DRUGS (9)
  1. CARVEDILOL [Concomitant]
  2. RIBAVIRIN [Suspect]
     Indication: HEPATITIS C
     Dosage: 800 MG;QD;PO
     Route: 048
     Dates: start: 20110718
  3. DOXAZOSIN MESYLATE [Concomitant]
  4. AMLODIPINE BESYLATE [Concomitant]
  5. PANTOPRAZOLE [Concomitant]
  6. LOSARTAN POTASSIUM [Concomitant]
  7. ENALAPRIL [Concomitant]
  8. VICTRELIS [Suspect]
     Indication: HEPATITIS C
     Dosage: 800 MG;Q8H;PO
     Route: 048
     Dates: start: 20111124
  9. PEGASYS [Suspect]
     Indication: HEPATITIS C
     Dosage: 180 MCG;QW;SC
     Route: 058
     Dates: start: 20110718

REACTIONS (13)
  - DIARRHOEA [None]
  - VOMITING [None]
  - URINARY TRACT INFECTION [None]
  - OEDEMA PERIPHERAL [None]
  - NAUSEA [None]
  - HYPERTENSIVE CRISIS [None]
  - CEREBRAL HAEMATOMA [None]
  - DEPRESSION [None]
  - ASCITES [None]
  - ASTHENIA [None]
  - VASCULITIS [None]
  - INSOMNIA [None]
  - MALNUTRITION [None]
